FAERS Safety Report 5823639-5 (Version None)
Quarter: 2008Q3

REPORT INFORMATION
  Report Type: 
  Country: None (occurrence: None)
  Receive Date: 20080725
  Receipt Date: 20080717
  Transmission Date: 20090109
  Serious: Yes (Death)
  Sender: FDA-Public Use
  Company Number: FR-PFIZER INC-2008051801

PATIENT
  Age: 76 Year
  Sex: Female

DRUGS (10)
  1. CAMPTOSAR [Suspect]
     Indication: RECTAL CANCER METASTATIC
     Route: 042
     Dates: start: 20080513, end: 20080513
  2. CAMPTOSAR [Suspect]
     Indication: METASTASES TO LIVER
  3. LARGACTIL [Suspect]
     Route: 042
     Dates: start: 20080514, end: 20080515
  4. PRIMPERAN TAB [Suspect]
     Route: 042
     Dates: start: 20080513, end: 20080516
  5. ZOPHREN [Concomitant]
     Route: 042
     Dates: start: 20080513, end: 20080516
  6. FLUOROURACIL [Concomitant]
     Indication: RECTAL CANCER METASTATIC
     Dosage: FREQ:CYCLIC
     Route: 042
     Dates: start: 20080513, end: 20080514
  7. FLUOROURACIL [Concomitant]
     Indication: METASTASES TO LIVER
  8. ATROPINE SULFATE [Concomitant]
     Route: 058
     Dates: start: 20080513, end: 20080513
  9. PARIET [Concomitant]
     Dosage: DAILY DOSE:20MG
  10. PAROXETINE HCL [Concomitant]

REACTIONS (2)
  - CONFUSIONAL STATE [None]
  - RENAL FAILURE [None]
